FAERS Safety Report 8776927 (Version 2)
Quarter: 2013Q2

REPORT INFORMATION
  Report Type: Spontaneous
  Country: US (occurrence: US)
  Receive Date: 20120911
  Receipt Date: 20130430
  Transmission Date: 20140414
  Serious: Yes (Hospitalization)
  Sender: FDA-Public Use
  Company Number: US-BAYER-2012-094078

PATIENT
  Age: 28 Year
  Sex: Female
  Weight: 58.96 kg

DRUGS (6)
  1. OCELLA [Suspect]
  2. YASMIN [Suspect]
  3. GENERLAC [Concomitant]
     Dosage: 10MG/15ML
     Route: 048
     Dates: start: 20100726
  4. TYLENOL [Concomitant]
     Indication: MIGRAINE
  5. XANAX [Concomitant]
     Dosage: 0.25 MG, PRN
  6. FOLIC ACID [Concomitant]
     Dosage: ONE DAILY

REACTIONS (1)
  - Pulmonary embolism [None]
